FAERS Safety Report 15105789 (Version 4)
Quarter: 2020Q4

REPORT INFORMATION
  Report Type: Spontaneous
  Country: DE (occurrence: DE)
  Receive Date: 20180704
  Receipt Date: 20201211
  Transmission Date: 20210113
  Serious: Yes (Hospitalization, Other)
  Sender: FDA-Public Use
  Company Number: DE-AUROBINDO-AUR-APL-2018-033422

PATIENT
  Age: 76 Year
  Sex: Male

DRUGS (29)
  1. IPILIMUMAB [Suspect]
     Active Substance: IPILIMUMAB
     Indication: MALIGNANT MELANOMA
     Dosage: 261 MG, Q3WK
     Route: 065
     Dates: start: 20170531, end: 20170712
  2. NIVOLUMAB [Suspect]
     Active Substance: NIVOLUMAB
     Dosage: 222 MG, UNK
     Route: 042
     Dates: start: 20171122
  3. NIVOLUMAB [Suspect]
     Active Substance: NIVOLUMAB
     Dosage: 86 MILLIGRAM, 3 WEEK
     Route: 042
     Dates: start: 20170531, end: 20170531
  4. DEXAMETHASONE. [Concomitant]
     Active Substance: DEXAMETHASONE
     Indication: PRODUCT USED FOR UNKNOWN INDICATION
     Dosage: 4 MG, QD
     Route: 048
     Dates: start: 20171207
  5. INFLIXIMAB [Concomitant]
     Active Substance: INFLIXIMAB
     Indication: PRODUCT USED FOR UNKNOWN INDICATION
     Dosage: UNK
     Route: 065
  6. IBUPROFEN. [Suspect]
     Active Substance: IBUPROFEN
     Indication: PRODUCT USED FOR UNKNOWN INDICATION
     Dosage: UNK
     Route: 065
  7. IPILIMUMAB [Suspect]
     Active Substance: IPILIMUMAB
     Dosage: 261 MG, Q3WK
     Route: 065
     Dates: start: 20170712
  8. NIVOLUMAB [Suspect]
     Active Substance: NIVOLUMAB
     Dosage: 243 MG, UNK
     Route: 042
     Dates: start: 20180123
  9. PREDNISOLONE HEMISUCCINATE [Concomitant]
     Active Substance: PREDNISOLONE HEMISUCCINATE
     Indication: PRODUCT USED FOR UNKNOWN INDICATION
     Dosage: UNK
     Route: 065
  10. NIVOLUMAB [Suspect]
     Active Substance: NIVOLUMAB
     Dosage: 246 MG, UNK
     Route: 042
     Dates: start: 20170901
  11. NIVOLUMAB [Suspect]
     Active Substance: NIVOLUMAB
     Dosage: 219 MG, UNK
     Route: 042
     Dates: start: 20171206
  12. SODIUM CHLORIDE. [Concomitant]
     Active Substance: SODIUM CHLORIDE
     Indication: PRODUCT USED FOR UNKNOWN INDICATION
     Dosage: UNK
     Route: 065
  13. MOMETASONE FUROATE. [Concomitant]
     Active Substance: MOMETASONE FUROATE
     Indication: PRODUCT USED FOR UNKNOWN INDICATION
     Dosage: 2
     Route: 065
     Dates: start: 20180419
  14. CARBIMAZOLE [Suspect]
     Active Substance: CARBIMAZOLE
     Indication: PRODUCT USED FOR UNKNOWN INDICATION
     Dosage: UNK
     Route: 065
  15. LAUROMACROGOL 400 [Concomitant]
     Active Substance: POLIDOCANOL
     Indication: PRODUCT USED FOR UNKNOWN INDICATION
     Dosage: UNK
     Route: 065
  16. NIVOLUMAB [Suspect]
     Active Substance: NIVOLUMAB
     Dosage: 87 MILLIGRAM, 3 WEEK
     Route: 042
     Dates: start: 20170712
  17. PREDNISOLONE. [Concomitant]
     Active Substance: PREDNISOLONE
     Indication: PRODUCT USED FOR UNKNOWN INDICATION
     Dosage: UNK
     Route: 065
  18. NIVOLUMAB [Suspect]
     Active Substance: NIVOLUMAB
     Indication: MALIGNANT MELANOMA
     Dosage: 222 MG, Q2WK
     Route: 042
     Dates: start: 20170531
  19. NIVOLUMAB [Suspect]
     Active Substance: NIVOLUMAB
     Dosage: 243 MG, UNK
     Route: 042
     Dates: start: 20180109
  20. TOREMIFENE CITRATE [Concomitant]
     Active Substance: TOREMIFENE CITRATE
     Indication: PRODUCT USED FOR UNKNOWN INDICATION
     Dosage: 10 MILLIGRAM
     Route: 042
  21. IPILIMUMAB [Suspect]
     Active Substance: IPILIMUMAB
     Dosage: 258 MG, Q3WK
     Route: 065
     Dates: start: 20170531, end: 20170531
  22. IPILIMUMAB [Suspect]
     Active Substance: IPILIMUMAB
     Dosage: 258 MG, Q3WK
     Route: 065
     Dates: start: 20170621, end: 20170621
  23. NIVOLUMAB [Suspect]
     Active Substance: NIVOLUMAB
     Dosage: 246 MG, UNK
     Route: 042
     Dates: start: 20171024
  24. NIVOLUMAB [Suspect]
     Active Substance: NIVOLUMAB
     Dosage: 222 MG, UNK
     Route: 042
     Dates: start: 20171108
  25. NIVOLUMAB [Suspect]
     Active Substance: NIVOLUMAB
     Dosage: 86 MILLIGRAM, 3 WEEK
     Route: 042
     Dates: start: 20170621, end: 20170621
  26. LOPERAMIDE HYDROCHLORIDE. [Concomitant]
     Active Substance: LOPERAMIDE HYDROCHLORIDE
     Indication: PRODUCT USED FOR UNKNOWN INDICATION
     Dosage: UNK
     Route: 065
  27. FUROSEMIDE. [Concomitant]
     Active Substance: FUROSEMIDE
     Indication: PRODUCT USED FOR UNKNOWN INDICATION
     Dosage: UNK
     Route: 065
  28. NIVOLUMAB [Suspect]
     Active Substance: NIVOLUMAB
     Dosage: 219.6 MG, UNK
     Route: 042
     Dates: start: 20171220
  29. DEXAMETHASONE. [Concomitant]
     Active Substance: DEXAMETHASONE
     Dosage: 8 MG, QD
     Route: 048
     Dates: start: 20171117, end: 20171122

REACTIONS (19)
  - Aphasia [Unknown]
  - Hypotension [Recovered/Resolved]
  - Hypersensitivity [Recovered/Resolved]
  - Decreased appetite [Unknown]
  - Colitis [Recovered/Resolved]
  - Inappropriate antidiuretic hormone secretion [Recovered/Resolved]
  - Adverse event [Unknown]
  - Pruritus [Unknown]
  - Fall [Recovered/Resolved]
  - Rash maculo-papular [Recovered/Resolved]
  - Dehydration [Recovered/Resolved]
  - Fatigue [Recovered/Resolved]
  - Diarrhoea [Not Recovered/Not Resolved]
  - Left ventricular dysfunction [Not Recovered/Not Resolved]
  - Vertigo [Recovered/Resolved]
  - Hypocalcaemia [Recovered/Resolved]
  - Urticaria [Recovered/Resolved]
  - Hyperthyroidism [Recovered/Resolved]
  - Off label use [Unknown]

NARRATIVE: CASE EVENT DATE: 20170604
